FAERS Safety Report 4305484-5 (Version None)
Quarter: 2004Q1

REPORT INFORMATION
  Report Type: 
  Country: None (occurrence: None)
  Receive Date: 20040226
  Receipt Date: 20030926
  Transmission Date: 20041129
  Serious: No
  Sender: FDA-Public Use
  Company Number: US-BRISTOL-MYERS SQUIBB COMPANY-12397063

PATIENT
  Sex: Male

DRUGS (4)
  1. ABILIFY [Suspect]
     Indication: HALLUCINATION, AUDITORY
     Dosage: 30 MG INITIAL, 45 MG ^NOW^. ALSO REPORTED THAT(^DOSE DECREASED ON 08-OCT-03^)
     Route: 048
     Dates: start: 20030701
  2. ABILIFY [Suspect]
     Indication: AGITATION
     Dosage: 30 MG INITIAL, 45 MG ^NOW^. ALSO REPORTED THAT(^DOSE DECREASED ON 08-OCT-03^)
     Route: 048
     Dates: start: 20030701
  3. SEROQUEL [Concomitant]
     Dosage: AT HS
  4. BENADRYL [Concomitant]

REACTIONS (3)
  - BLOOD PROLACTIN DECREASED [None]
  - NIPPLE PAIN [None]
  - PRESCRIBED OVERDOSE [None]
